FAERS Safety Report 8511469 (Version 3)
Quarter: 2013Q3

REPORT INFORMATION
  Report Type: Spontaneous
  Country: US (occurrence: US)
  Receive Date: 20120413
  Receipt Date: 20130719
  Transmission Date: 20140515
  Serious: Yes (Other)
  Sender: FDA-Public Use
  Company Number: US-ASTRAZENECA-2011SE32232

PATIENT
  Age: 57 Year
  Sex: Female
  Weight: 54.4 kg

DRUGS (13)
  1. NEXIUM [Suspect]
     Dosage: DAILY
     Route: 048
  2. NEXIUM [Suspect]
     Route: 048
  3. NEXIUM [Suspect]
     Route: 048
     Dates: start: 20121019
  4. ZANTAC [Concomitant]
  5. LISINOPRIL [Concomitant]
  6. IBUPROFEN [Concomitant]
  7. NAPROXEN [Concomitant]
  8. CALTRATE [Concomitant]
  9. VITAMIN D [Concomitant]
  10. ASPIRIN [Concomitant]
     Dates: start: 20121019
  11. CITALOPRAM [Concomitant]
     Dates: start: 20121019
  12. RISPERIDONE [Concomitant]
     Dates: start: 20121019
  13. PHENYTOIN SODIUM [Concomitant]
     Dates: start: 20121019

REACTIONS (4)
  - Tibia fracture [Unknown]
  - Osteoporosis [Unknown]
  - Fracture [Unknown]
  - Depression [Unknown]
